FAERS Safety Report 9975474 (Version 1)
Quarter: 2014Q1

REPORT INFORMATION
  Report Type: Report from Study
  Country: US (occurrence: US)
  Receive Date: 20140306
  Receipt Date: 20140306
  Transmission Date: 20141002
  Serious: No
  Sender: FDA-Public Use
  Company Number: US-ABBVIE-13P-163-1155682-00

PATIENT
  Age: 40 Year
  Sex: Female

DRUGS (5)
  1. HUMIRA [Suspect]
     Indication: CROHN^S DISEASE
     Dosage: LOADING DOSE
     Dates: start: 20130919, end: 20130919
  2. HUMIRA [Suspect]
     Dates: start: 20131003
  3. IMURAN [Concomitant]
     Indication: CROHN^S DISEASE
  4. TYLENOL W/CODEINE NO. 3 [Concomitant]
     Indication: PAIN
  5. ENTOCORT [Concomitant]
     Indication: CROHN^S DISEASE

REACTIONS (5)
  - Pain [Unknown]
  - Abasia [Unknown]
  - Crohn^s disease [Recovering/Resolving]
  - Injection site pain [Unknown]
  - Contusion [Unknown]
